FAERS Safety Report 9162289 (Version 2)
Quarter: 2013Q2

REPORT INFORMATION
  Report Type: Spontaneous
  Country: US (occurrence: US)
  Receive Date: 20130314
  Receipt Date: 20130401
  Transmission Date: 20140414
  Serious: Yes (Death, Hospitalization)
  Sender: FDA-Public Use
  Company Number: PHEH2012US023838

PATIENT
  Age: 34 Year
  Sex: Male
  Weight: 51.55 kg

DRUGS (1)
  1. TOBI [Suspect]
     Indication: PSEUDOMONAS INFECTION
     Dosage: 300 MG, BID
     Dates: start: 20080422, end: 20130308

REACTIONS (3)
  - Obliterative bronchiolitis [Fatal]
  - Lung infection [Recovering/Resolving]
  - Lung transplant rejection [Unknown]
